FAERS Safety Report 17143504 (Version 1)
Quarter: 2019Q4

REPORT INFORMATION
  Report Type: Spontaneous
  Country: AR (occurrence: AR)
  Receive Date: 20191211
  Receipt Date: 20191211
  Transmission Date: 20200122
  Serious: Yes (Life-Threatening)
  Sender: FDA-Public Use
  Company Number: AR-AMERICAN REGENT INC-20190993

PATIENT
  Age: 27 Year
  Sex: Female
  Weight: 50 kg

DRUGS (1)
  1. VENOFER [Suspect]
     Active Substance: IRON SUCROSE
     Indication: PRODUCT USED FOR UNKNOWN INDICATION
     Dosage: 300 MG 2 HOURS
     Dates: start: 201903

REACTIONS (8)
  - Hypersensitivity [Recovered/Resolved]
  - Dyspepsia [Recovered/Resolved]
  - Dysgeusia [Recovered/Resolved]
  - Limb discomfort [Recovered/Resolved]
  - Respiratory distress [Recovered/Resolved]
  - Back pain [Recovered/Resolved]
  - Abdominal pain [Recovered/Resolved]
  - Dysphonia [Recovered/Resolved]

NARRATIVE: CASE EVENT DATE: 201903
